FAERS Safety Report 8249192-7 (Version None)
Quarter: 2012Q1

REPORT INFORMATION
  Report Type: 
  Country: None (occurrence: None)
  Receive Date: 20120328
  Receipt Date: 20120316
  Transmission Date: 20120608
  Serious: Yes (Hospitalization)
  Sender: FDA-Public Use
  Company Number: UTC-015971

PATIENT
  Age: 42 Year
  Sex: Male
  Weight: 80.45 kg

DRUGS (2)
  1. REMODULIN [Suspect]
     Indication: PULMONARY ARTERIAL HYPERTENSION
     Dosage: 66.24 UG/KG (0.046 UG/KG,1 IN 1 MIN),INTRAVENOUS
     Route: 042
     Dates: start: 20120201
  2. DIURETICS (DIURETICS) [Concomitant]

REACTIONS (1)
  - RESPIRATORY DISTRESS [None]
